FAERS Safety Report 10252765 (Version 1)
Quarter: 2014Q2

REPORT INFORMATION
  Report Type: Spontaneous
  Country: FR (occurrence: FR)
  Receive Date: 20140623
  Receipt Date: 20140623
  Transmission Date: 20141212
  Serious: Yes (Death)
  Sender: FDA-Public Use
  Company Number: FR-ASTRAZENECA-2014SE45560

PATIENT
  Sex: Female

DRUGS (1)
  1. XEROQUEL [Suspect]
     Route: 048

REACTIONS (2)
  - Death [Fatal]
  - Weight increased [Unknown]
